FAERS Safety Report 18807524 (Version 2)
Quarter: 2021Q1

REPORT INFORMATION
  Report Type: Spontaneous
  Country: GB (occurrence: US)
  Receive Date: 20210129
  Receipt Date: 20210201
  Transmission Date: 20210419
  Serious: Yes (Death, Life-Threatening, Other)
  Sender: FDA-Public Use
  Company Number: US-PFIZER INC-2021068111

PATIENT
  Age: 63 Year
  Sex: Female

DRUGS (1)
  1. CHLORPROPAMIDE. [Suspect]
     Active Substance: CHLORPROPAMIDE
     Indication: DIABETES MELLITUS
     Dosage: 375 MG, 1X/DAY
     Dates: start: 196106

REACTIONS (2)
  - Bone marrow failure [Fatal]
  - Agranulocytosis [Unknown]
